FAERS Safety Report 7198491-9 (Version None)
Quarter: 2010Q4

REPORT INFORMATION
  Report Type: 
  Country: None (occurrence: None)
  Receive Date: 20101227
  Receipt Date: 20101221
  Transmission Date: 20110411
  Serious: Yes (Life-Threatening)
  Sender: FDA-Public Use
  Company Number: PHHY2010CA87579

PATIENT
  Sex: Female

DRUGS (4)
  1. TOBRAMYCIN [Suspect]
     Indication: FEBRILE NEUTROPENIA
     Dosage: UNK
     Route: 042
     Dates: start: 20101104, end: 20101105
  2. REVLIMID [Suspect]
     Indication: MULTIPLE MYELOMA
     Dosage: 25 MG DAILY
     Route: 048
     Dates: start: 20101029, end: 20101104
  3. ANCEF [Suspect]
     Indication: FEBRILE NEUTROPENIA
     Dosage: UNK
     Route: 042
     Dates: start: 20101104, end: 20101105
  4. VELCADE [Concomitant]

REACTIONS (9)
  - ANGIOEDEMA [None]
  - EXFOLIATIVE RASH [None]
  - LIP SWELLING [None]
  - NEUROPATHY PERIPHERAL [None]
  - PRURITUS [None]
  - PYREXIA [None]
  - RASH GENERALISED [None]
  - RASH MACULO-PAPULAR [None]
  - SWOLLEN TONGUE [None]
